FAERS Safety Report 16428205 (Version 1)
Quarter: 2019Q2

REPORT INFORMATION
  Report Type: Spontaneous
  Country: US (occurrence: US)
  Receive Date: 20190613
  Receipt Date: 20190613
  Transmission Date: 20190711
  Serious: Yes (Hospitalization, Other)
  Sender: FDA-Public Use
  Company Number: US-MYLANLABS-2019M1055668

PATIENT
  Age: 67 Year
  Sex: Female

DRUGS (1)
  1. IDARUBICIN [Suspect]
     Active Substance: IDARUBICIN
     Indication: ACUTE MYELOID LEUKAEMIA
     Route: 065

REACTIONS (5)
  - Haematochezia [Unknown]
  - Pneumatosis intestinalis [Unknown]
  - Nutritional condition abnormal [Unknown]
  - Neutropenic colitis [Unknown]
  - Neutropenia [Unknown]
